FAERS Safety Report 9636733 (Version 2)
Quarter: 2013Q4

REPORT INFORMATION
  Report Type: Report from Study
  Country: FR (occurrence: FR)
  Receive Date: 20131022
  Receipt Date: 20131107
  Transmission Date: 20140711
  Serious: Yes (Death)
  Sender: FDA-Public Use
  Company Number: FR-ROCHE-1292069

PATIENT
  Age: 40 Year
  Sex: Female

DRUGS (3)
  1. ZELBORAF [Suspect]
     Indication: NEOPLASM MALIGNANT
     Dosage: 2 DOSAGE FORMS IN MORNING AND 3 DOSAGE FORMS IN EVENING
     Route: 048
     Dates: start: 20130214
  2. DEPAKOTE [Concomitant]
     Dosage: START DATE APPROXIMATE 31/JUL/2012
     Route: 048
  3. TRAMADOL [Concomitant]
     Dosage: LP 100, 1DF IN MORNING
     Route: 048
     Dates: start: 20130702

REACTIONS (1)
  - Disease progression [Fatal]
